FAERS Safety Report 5614763-0 (Version None)
Quarter: 2008Q1

REPORT INFORMATION
  Report Type: 
  Country: None (occurrence: None)
  Receive Date: 20080205
  Receipt Date: 20080128
  Transmission Date: 20080703
  Serious: Yes (Hospitalization, Other)
  Sender: FDA-Public Use
  Company Number: US-ELI_LILLY_AND_COMPANY-US200712000339

PATIENT
  Sex: Female

DRUGS (10)
  1. BYETTA [Suspect]
     Dosage: 5 UG, 2/D
     Route: 058
     Dates: start: 20051104, end: 20051204
  2. BYETTA [Suspect]
     Dosage: 10 UG, 2/D
     Route: 058
     Dates: start: 20051204, end: 20071125
  3. PROZAC [Concomitant]
     Dosage: 60 MG, DAILY (1/D)
     Route: 065
  4. HYZAAR [Concomitant]
     Dosage: UNK, UNKNOWN
  5. COZAAR [Concomitant]
     Dosage: 50 MG, DAILY (1/D)
     Route: 048
  6. ASPIRIN [Concomitant]
     Dosage: 81 MG, DAILY (1/D)
     Route: 048
  7. LIPITOR [Concomitant]
     Dosage: 20 MG, EACH EVENING
     Route: 048
  8. TOPROL-XL [Concomitant]
     Dosage: 25 MG, DAILY (1/D)
     Route: 048
  9. LANTUS [Concomitant]
     Dosage: 24 U, EACH EVENING
     Route: 065
  10. PRILOSEC [Concomitant]
     Dosage: 20 MG, DAILY (1/D)
     Route: 048

REACTIONS (1)
  - PANCREATITIS [None]
